FAERS Safety Report 9457160 (Version 1)
Quarter: 2013Q3

REPORT INFORMATION
  Report Type: Spontaneous
  Country: US (occurrence: US)
  Receive Date: 20130814
  Receipt Date: 20130814
  Transmission Date: 20140515
  Serious: No
  Sender: FDA-Public Use
  Company Number: US-BIOGENIDEC-2013BI075176

PATIENT
  Sex: Male

DRUGS (1)
  1. TYSABRI [Suspect]
     Indication: MULTIPLE SCLEROSIS
     Route: 042
     Dates: start: 20130219

REACTIONS (5)
  - Band sensation [Recovered/Resolved]
  - Toothache [Recovered/Resolved]
  - Back pain [Unknown]
  - Nerve root compression [Unknown]
  - Depression [Recovered/Resolved]
